FAERS Safety Report 23975872 (Version 1)
Quarter: 2024Q2

REPORT INFORMATION
  Report Type: Spontaneous
  Country: CN (occurrence: CN)
  Receive Date: 20240614
  Receipt Date: 20240614
  Transmission Date: 20240716
  Serious: Yes (Life-Threatening, Hospitalization, Disabling, Other)
  Sender: FDA-Public Use
  Company Number: CN-GE HEALTHCARE-2024CSU006268

PATIENT
  Age: 75 Year
  Sex: Male

DRUGS (1)
  1. VISIPAQUE [Suspect]
     Active Substance: IODIXANOL
     Indication: Cerebral endovascular aneurysm repair
     Dosage: 260 ML, TOTAL

REACTIONS (5)
  - Motor dysfunction [Recovering/Resolving]
  - Coma [Recovered/Resolved]
  - Contrast encephalopathy [Recovering/Resolving]
  - Seizure [Recovered/Resolved]
  - Pyrexia [Recovered/Resolved]
